FAERS Safety Report 10299513 (Version 3)
Quarter: 2015Q3

REPORT INFORMATION
  Report Type: Spontaneous
  Country: US (occurrence: US)
  Receive Date: 20140711
  Receipt Date: 20150817
  Transmission Date: 20151125
  Serious: No
  Sender: FDA-Public Use
  Company Number: US-GILEAD-2013-0084849

PATIENT
  Age: 66 Year
  Sex: Female

DRUGS (11)
  1. LETAIRIS [Suspect]
     Active Substance: AMBRISENTAN
     Indication: PULMONARY ARTERIAL HYPERTENSION
     Dosage: 5 MG, QD
     Dates: start: 20130726, end: 20130906
  2. LASIX [Concomitant]
     Active Substance: FUROSEMIDE
  3. REVATIO [Concomitant]
     Active Substance: SILDENAFIL CITRATE
  4. PROAIR HFA [Concomitant]
     Active Substance: ALBUTEROL SULFATE
  5. ASPIRIN. [Concomitant]
     Active Substance: ASPIRIN
  6. LIPITOR [Concomitant]
     Active Substance: ATORVASTATIN CALCIUM
  7. K-TAB [Concomitant]
     Active Substance: POTASSIUM CHLORIDE
  8. FLONASE                            /00908302/ [Concomitant]
  9. DIGOXIN. [Concomitant]
     Active Substance: DIGOXIN
  10. SPIRONOLACTONE. [Concomitant]
     Active Substance: SPIRONOLACTONE
  11. SPIRIVA [Concomitant]
     Active Substance: TIOTROPIUM BROMIDE MONOHYDRATE

REACTIONS (1)
  - Peripheral swelling [Recovered/Resolved]
